FAERS Safety Report 25286943 (Version 1)
Quarter: 2025Q2

REPORT INFORMATION
  Report Type: Spontaneous
  Country: IE (occurrence: US)
  Receive Date: 20250509
  Receipt Date: 20250509
  Transmission Date: 20250716
  Serious: Yes (Hospitalization, Other)
  Sender: JEROME STEVENS
  Company Number: US-Jerome Stevens Pharmaceuticals, Inc.-2176437

PATIENT
  Age: 78 Year
  Sex: Female

DRUGS (14)
  1. DIGOXIN [Suspect]
     Active Substance: DIGOXIN
     Indication: Product used for unknown indication
  2. BISOPROLOL. [Concomitant]
  3. MIRTAZAPINE [Concomitant]
     Active Substance: MIRTAZAPINE
  4. UMECLIDINIUM [Concomitant]
     Active Substance: UMECLIDINIUM
  5. BUDESONIDE\FORMOTEROL [Concomitant]
     Active Substance: BUDESONIDE\FORMOTEROL
  6. ATORVASTATIN [Concomitant]
     Active Substance: ATORVASTATIN
  7. FUROSEMIDE [Concomitant]
     Active Substance: FUROSEMIDE
  8. Gliclazide (modified release) [Concomitant]
  9. METFORMIN [Concomitant]
     Active Substance: METFORMIN HYDROCHLORIDE
  10. LANSOPRAZOLE [Concomitant]
     Active Substance: LANSOPRAZOLE
  11. FERROUS FUMARATE [Concomitant]
     Active Substance: FERROUS FUMARATE
  12. ALLOPURINOL [Concomitant]
     Active Substance: ALLOPURINOL
  13. AMIODARONE [Concomitant]
     Active Substance: AMIODARONE
  14. EDOXABAN [Concomitant]
     Active Substance: EDOXABAN

REACTIONS (2)
  - Toxicity to various agents [Recovered/Resolved]
  - Chorea [Recovered/Resolved]
